FAERS Safety Report 9624907 (Version 1)
Quarter: 2013Q4

REPORT INFORMATION
  Report Type: Spontaneous
  Country: US (occurrence: US)
  Receive Date: 20131016
  Receipt Date: 20131016
  Transmission Date: 20140711
  Serious: No
  Sender: FDA-Public Use
  Company Number: US-009507513-1310USA005192

PATIENT
  Age: 67 Year
  Sex: Female

DRUGS (6)
  1. LISINOPRIL [Suspect]
     Indication: BLOOD PRESSURE
     Dosage: 10 MG, QD
     Dates: start: 201307, end: 20130808
  2. LOSARTAN POTASSIUM TABLETS [Suspect]
     Indication: BLOOD PRESSURE
     Dosage: 50 MG, QD
     Dates: start: 20130809
  3. LUMIGAN [Suspect]
     Indication: GLAUCOMA
     Dosage: 2 GTT, HS (ONE DROP IN EACH EYE AT BED TIME)
     Route: 047
     Dates: start: 20130808
  4. METFORMIN [Concomitant]
     Indication: DIABETES MELLITUS
     Dosage: UNK
  5. GLIMEPIRIDE [Concomitant]
     Indication: DIABETES MELLITUS
     Dosage: UNK
  6. ATENOLOL [Concomitant]
     Indication: HYPERTENSION

REACTIONS (2)
  - Cough [Recovered/Resolved]
  - Scleral hyperaemia [Recovered/Resolved]
